FAERS Safety Report 17964604 (Version 1)
Quarter: 2020Q2

REPORT INFORMATION
  Report Type: Spontaneous
  Country: US (occurrence: US)
  Receive Date: 20200630
  Receipt Date: 20200630
  Transmission Date: 20200714
  Serious: Yes (Hospitalization, Other)
  Sender: FDA-Public Use
  Company Number: US-SA-2020SA167990

PATIENT

DRUGS (1)
  1. DUPIXENT [Suspect]
     Active Substance: DUPILUMAB
     Dosage: 30 MG,OTHER
     Route: 058
     Dates: start: 20200114

REACTIONS (2)
  - Meningitis [Unknown]
  - Product use issue [Unknown]

NARRATIVE: CASE EVENT DATE: 20200114
